FAERS Safety Report 9218239 (Version 1)
Quarter: 2013Q2

REPORT INFORMATION
  Report Type: Spontaneous
  Country: GB (occurrence: GB)
  Receive Date: 20130408
  Receipt Date: 20130408
  Transmission Date: 20140414
  Serious: Yes (Other)
  Sender: FDA-Public Use
  Company Number: GB-009507513-1209GBR002612

PATIENT
  Sex: Female

DRUGS (1)
  1. MK-8415 [Suspect]

REACTIONS (2)
  - Polycystic ovaries [Unknown]
  - Unintended pregnancy [Unknown]
